FAERS Safety Report 25237788 (Version 1)
Quarter: 2025Q2

REPORT INFORMATION
  Report Type: Spontaneous
  Country: US (occurrence: US)
  Receive Date: 20250425
  Receipt Date: 20250425
  Transmission Date: 20250717
  Serious: No
  Sender: ABBVIE
  Company Number: US-ABBVIE-6247530

PATIENT
  Sex: Male

DRUGS (3)
  1. HUMIRA [Suspect]
     Active Substance: ADALIMUMAB
     Indication: Rheumatoid arthritis
     Route: 058
     Dates: start: 202407, end: 202412
  2. HUMIRA [Suspect]
     Active Substance: ADALIMUMAB
     Route: 058
     Dates: start: 202504
  3. OZEMPIC [Suspect]
     Active Substance: SEMAGLUTIDE
     Indication: Rheumatoid arthritis
     Route: 065

REACTIONS (2)
  - Drug ineffective [Unknown]
  - Device use error [Not Recovered/Not Resolved]
